FAERS Safety Report 8604061-5 (Version None)
Quarter: 2012Q3

REPORT INFORMATION
  Report Type: 
  Country: None (occurrence: None)
  Receive Date: 20120820
  Receipt Date: 20120810
  Transmission Date: 20120928
  Serious: No
  Sender: FDA-Public Use
  Company Number: US-BIOGENIDEC-2012BI031110

PATIENT
  Age: 31 Year
  Sex: Female

DRUGS (2)
  1. TYSABRI [Suspect]
     Indication: MULTIPLE SCLEROSIS
     Route: 042
     Dates: start: 20080819, end: 20081121
  2. TYSABRI [Suspect]
     Route: 042
     Dates: start: 20090813

REACTIONS (3)
  - PNEUMONIA [None]
  - COUGH [None]
  - NASOPHARYNGITIS [None]
